FAERS Safety Report 16740666 (Version 1)
Quarter: 2019Q4

REPORT INFORMATION
  Report Type: Spontaneous
  Country: US (occurrence: US)
  Receive Date: 20190824
  Receipt Date: 20190824
  Transmission Date: 20200122
  Serious: Yes (Hospitalization)
  Sender: FDA-Public Use
  Company Number: None

PATIENT
  Age: 68 Year
  Sex: Male
  Weight: 112.5 kg

DRUGS (7)
  1. PRAVASTATIN. [Concomitant]
     Active Substance: PRAVASTATIN
  2. CPAP [Concomitant]
     Active Substance: DEVICE
  3. LEVOTHYOXIN [Concomitant]
     Active Substance: LEVOTHYROXINE
  4. MULTI VITAMIN [Concomitant]
     Active Substance: VITAMINS
  5. ALFUZOSIN HCL 10MG SA TAB [Suspect]
     Active Substance: ALFUZOSIN HYDROCHLORIDE
     Indication: URINE FLOW DECREASED
     Dosage: ?          QUANTITY:1 TABLET(S);?
     Route: 048
  6. WELLBUTRIN [Concomitant]
     Active Substance: BUPROPION HYDROCHLORIDE
  7. LISINOPRIL. [Concomitant]
     Active Substance: LISINOPRIL

REACTIONS (5)
  - Dizziness [None]
  - Loss of consciousness [None]
  - Fall [None]
  - Cerebrovascular accident [None]
  - Hypotension [None]

NARRATIVE: CASE EVENT DATE: 20190824
